FAERS Safety Report 14212828 (Version 1)
Quarter: 2017Q4

REPORT INFORMATION
  Report Type: Spontaneous
  Country: US (occurrence: None)
  Receive Date: 20171121
  Receipt Date: 20171121
  Transmission Date: 20180321
  Serious: Yes (Other)
  Sender: FDA-Public Use
  Company Number: None

PATIENT
  Age: 42 Year
  Sex: Female

DRUGS (1)
  1. MYFORTIC [Suspect]
     Active Substance: MYCOPHENOLATE SODIUM
     Indication: NEPHRITIS
     Route: 048
     Dates: start: 20161219

REACTIONS (3)
  - Nausea [None]
  - Vomiting [None]
  - Therapy change [None]

NARRATIVE: CASE EVENT DATE: 20171118
